FAERS Safety Report 7687807-2 (Version None)
Quarter: 2011Q3

REPORT INFORMATION
  Report Type: 
  Country: None (occurrence: None)
  Receive Date: 20110817
  Receipt Date: 20110804
  Transmission Date: 20111222
  Serious: Yes (Hospitalization, Other)
  Sender: FDA-Public Use
  Company Number: US-ELI_LILLY_AND_COMPANY-US201104001648

PATIENT
  Sex: Female

DRUGS (18)
  1. FORTEO [Suspect]
     Indication: OSTEOPOROSIS
     Dosage: 20 UG, QD
     Route: 065
     Dates: start: 20101001
  2. FORTEO [Suspect]
     Dosage: 20 UG, QD
     Route: 065
  3. VITAMIN D [Concomitant]
     Dosage: 50000 IU, QD
  4. METOPROLOL TARTRATE [Concomitant]
     Dosage: 25 MG, QD
  5. ZOCOR [Concomitant]
     Dosage: UNK, QD
  6. AMLODIPINE [Concomitant]
     Dosage: 50 MG, QD
  7. FORTEO [Suspect]
     Dosage: 20 UG, QD
     Route: 065
  8. FORTEO [Suspect]
     Dosage: 20 UG, QD
     Route: 065
  9. NEXIUM [Concomitant]
     Dosage: UNK, QD
  10. CALCIUM 600 PLUS VITAMIN D [Concomitant]
     Dosage: 600 MG, UNKNOWN
  11. FORTEO [Suspect]
     Dosage: 20 UG, QD
     Route: 065
  12. PRESTYL [Concomitant]
  13. PRISTIQ [Concomitant]
     Dosage: 50 MG, QD
  14. FOLIC ACID [Concomitant]
     Dosage: 1 MG, QD
  15. LEFLUNOMIDE [Concomitant]
     Dosage: 20 MG, QD
  16. SIMVASTATIN [Concomitant]
     Dosage: 80 MG, QD
  17. ASPIRIN [Concomitant]
     Dosage: 81 MG, QD
  18. MONOPRIL [Concomitant]

REACTIONS (23)
  - FALL [None]
  - HIP FRACTURE [None]
  - ARTHROPATHY [None]
  - BLOOD CHOLESTEROL DECREASED [None]
  - GROIN PAIN [None]
  - ALOPECIA [None]
  - VOMITING [None]
  - MALAISE [None]
  - ASTHENIA [None]
  - HOSPITALISATION [None]
  - WEIGHT DECREASED [None]
  - FEMUR FRACTURE [None]
  - NAUSEA [None]
  - BALANCE DISORDER [None]
  - INFLUENZA [None]
  - INFLUENZA LIKE ILLNESS [None]
  - DIARRHOEA [None]
  - PELVIC FRACTURE [None]
  - WEIGHT INCREASED [None]
  - NEURALGIA [None]
  - INJECTION SITE HAEMATOMA [None]
  - DYSSTASIA [None]
  - PAIN IN EXTREMITY [None]
